FAERS Safety Report 8900259 (Version 1)
Quarter: 2012Q4

REPORT INFORMATION
  Report Type: 
  Country: US (occurrence: US)
  Receive Date: 20121108
  Receipt Date: 20121108
  Transmission Date: 20130627
  Serious: No
  Sender: FDA-Public Use
  Company Number: US-AMGEN-USASP2012037632

PATIENT
  Sex: Female
  Weight: 47.62 kg

DRUGS (8)
  1. ENBREL [Suspect]
     Indication: PRODUCT USED FOR UNKNOWN INDICATION
     Dosage: 50 mg, qwk
  2. METAMUCIL                          /00029101/ [Concomitant]
     Dosage: 0.52 g, UNK
  3. PRILOSEC                           /00661201/ [Concomitant]
     Dosage: 20 mg, UNK
  4. REGLAN                             /00041901/ [Concomitant]
     Dosage: 5 mg, UNK
  5. METHOTREXATE [Concomitant]
     Dosage: 2.5 mg, UNK
  6. LEUCOVORIN CA [Concomitant]
     Dosage: 5 mg, UNK
  7. CLONAZEPAM [Concomitant]
     Dosage: 5 mg, UNK
  8. MIRTAZAPINE [Concomitant]
     Dosage: 7.5 mg, UNK

REACTIONS (1)
  - Drug ineffective [Unknown]
